FAERS Safety Report 24408255 (Version 1)
Quarter: 2024Q4

REPORT INFORMATION
  Report Type: Report from Study
  Country: IT (occurrence: IT)
  Receive Date: 20241007
  Receipt Date: 20241007
  Transmission Date: 20250115
  Serious: Yes (Other)
  Sender: JAZZ
  Company Number: IT-JAZZ PHARMACEUTICALS-2024-IT-016773

PATIENT

DRUGS (1)
  1. VYXEOS [Suspect]
     Active Substance: CYTARABINE\DAUNORUBICIN
     Indication: Acute myeloid leukaemia
     Dosage: 71.3/162 MG, DAY 1,3,5
     Route: 042
     Dates: start: 20240607, end: 20240611

REACTIONS (7)
  - Aphthous ulcer [Recovered/Resolved]
  - Conjunctival haemorrhage [Recovered/Resolved]
  - Skin haemorrhage [Recovered/Resolved]
  - Blood bilirubin increased [Recovered/Resolved]
  - Blood alkaline phosphatase increased [Recovered/Resolved]
  - Aspartate aminotransferase increased [Recovered/Resolved]
  - Alanine aminotransferase increased [Unknown]

NARRATIVE: CASE EVENT DATE: 20240626
